FAERS Safety Report 12626911 (Version 1)
Quarter: 2016Q3

REPORT INFORMATION
  Report Type: Spontaneous
  Country: US (occurrence: US)
  Receive Date: 20160805
  Receipt Date: 20160805
  Transmission Date: 20161109
  Serious: Yes (Other)
  Sender: FDA-Public Use
  Company Number: US-MYLANLABS-2016M1031999

PATIENT

DRUGS (4)
  1. CISPLATIN. [Suspect]
     Active Substance: CISPLATIN
     Indication: NASOPHARYNGEAL CANCER
     Dosage: DURING CONCURRENT CHEMO-RADIATION FOLLOWED BY CONSOLIDATION THERAPY
     Route: 065
  2. FLUOROURACIL. [Suspect]
     Active Substance: FLUOROURACIL
     Indication: NASOPHARYNGEAL CANCER
     Dosage: DURING CONSOLIDATION THERAPY
     Route: 065
  3. CISPLATIN. [Suspect]
     Active Substance: CISPLATIN
     Indication: PROLACTIN-PRODUCING PITUITARY TUMOUR
  4. FLUOROURACIL. [Suspect]
     Active Substance: FLUOROURACIL
     Indication: PROLACTIN-PRODUCING PITUITARY TUMOUR

REACTIONS (1)
  - Adrenal insufficiency [Unknown]
